FAERS Safety Report 7355049-6 (Version None)
Quarter: 2011Q1

REPORT INFORMATION
  Report Type: 
  Country: None (occurrence: None)
  Receive Date: 20110314
  Receipt Date: 20110314
  Transmission Date: 20110831
  Serious: Yes (Hospitalization, Other)
  Sender: FDA-Public Use
  Company Number: None

PATIENT
  Sex: Female
  Weight: 63.5036 kg

DRUGS (1)
  1. RELION ALCOHOL SWABS WITH PAIN RELIEF ISOPROPYL ALCOHOL 70% WITH BENZO [Suspect]
     Indication: INJECTION
     Dosage: ONE SWAB/WIPE EVERY OTHER DAY SQ
     Route: 058
     Dates: start: 20100801, end: 20110309

REACTIONS (4)
  - PAIN [None]
  - ABSCESS [None]
  - GAIT DISTURBANCE [None]
  - INDURATION [None]
